FAERS Safety Report 9121174 (Version 3)
Quarter: 2013Q2

REPORT INFORMATION
  Report Type: Spontaneous
  Country: US (occurrence: US)
  Receive Date: 20130225
  Receipt Date: 20130503
  Transmission Date: 20140414
  Serious: Yes (Death)
  Sender: FDA-Public Use
  Company Number: US-ASTRAZENECA-2013SE11831

PATIENT
  Age: 8 Month
  Sex: Male

DRUGS (2)
  1. SYNAGIS [Suspect]
     Dosage: 15MG/KG MONTHLY
     Route: 030
     Dates: end: 201302
  2. ALBUTEROL [Concomitant]

REACTIONS (1)
  - Cardiac arrest [Fatal]
